FAERS Safety Report 20448785 (Version 2)
Quarter: 2022Q1

REPORT INFORMATION
  Report Type: Spontaneous
  Country: JP (occurrence: JP)
  Receive Date: 20220209
  Receipt Date: 20220217
  Transmission Date: 20220424
  Serious: No
  Sender: FDA-Public Use
  Company Number: JP-GLAXOSMITHKLINE-JP2022JPN019078

PATIENT
  Age: 24 Year
  Sex: Female

DRUGS (5)
  1. SOTROVIMAB [Suspect]
     Active Substance: SOTROVIMAB
     Indication: COVID-19
     Dosage: 500 MG, QD, WITH 50 ML OF NORMAL SALINE BEING INTRAVENOUSLY DRIPPED OVER 30 MINUTES, 500 MG/50 ML/30
     Route: 041
     Dates: start: 20220201, end: 20220201
  2. LOXOPROFEN SODIUM [Concomitant]
     Active Substance: LOXOPROFEN SODIUM
     Dosage: 60 MG, TID
  3. VONOPRAZAN FUMARATE [Concomitant]
     Active Substance: VONOPRAZAN FUMARATE
     Dosage: 10 MG, QD
  4. KIKYOTO [Concomitant]
     Dosage: 3 DF, TID
  5. FAVOIR 21 [Concomitant]
     Dosage: 1 DF, QD

REACTIONS (3)
  - Nausea [Recovered/Resolved]
  - Feeling abnormal [Recovered/Resolved]
  - Infusion related reaction [Recovered/Resolved]

NARRATIVE: CASE EVENT DATE: 20220201
